FAERS Safety Report 9036212 (Version 1)
Quarter: 2013Q1

REPORT INFORMATION
  Report Type: Spontaneous
  Country: US (occurrence: None)
  Receive Date: 20130117
  Receipt Date: 20130117
  Transmission Date: 20140127
  Serious: No
  Sender: FDA-Public Use
  Company Number: None

PATIENT
  Age: 36 Year
  Sex: Male

DRUGS (2)
  1. 6-MERCAPTOPURINE [Suspect]
     Dates: start: 20110103, end: 20110406
  2. PREDNISONE [Concomitant]

REACTIONS (2)
  - Drug-induced liver injury [None]
  - Hepatic enzyme increased [None]
